FAERS Safety Report 6223563-2 (Version None)
Quarter: 2009Q2

REPORT INFORMATION
  Report Type: 
  Country: None (occurrence: None)
  Receive Date: 20090610
  Receipt Date: 20090528
  Transmission Date: 20091009
  Serious: Yes (Hospitalization)
  Sender: FDA-Public Use
  Company Number: CIP09001512

PATIENT
  Weight: 2.4 kg

DRUGS (4)
  1. ACTONEL [Suspect]
     Dosage: 35 MG TRANSPLACENTAL
     Route: 064
     Dates: end: 20080828
  2. ALL OTHER THERAPEUTIC PRODUCTS [Concomitant]
  3. MATERFOLIC (FOLIC ACID) [Concomitant]
  4. PENVIR (FAMICICLOVIR) [Concomitant]

REACTIONS (7)
  - APGAR SCORE LOW [None]
  - CAESAREAN SECTION [None]
  - FOETAL HEART RATE DECELERATION [None]
  - MATERNAL DRUGS AFFECTING FOETUS [None]
  - NO THERAPEUTIC RESPONSE [None]
  - PREMATURE BABY [None]
  - UNEVALUABLE EVENT [None]
